FAERS Safety Report 16106922 (Version 1)
Quarter: 2019Q1

REPORT INFORMATION
  Report Type: Spontaneous
  Country: US (occurrence: US)
  Receive Date: 20190322
  Receipt Date: 20190322
  Transmission Date: 20190418
  Serious: Yes (Other)
  Sender: FDA-Public Use
  Company Number: US-TEVA-2019-US-1029323

PATIENT
  Age: 37 Year
  Sex: Female

DRUGS (1)
  1. CLONAZEPAM. [Suspect]
     Active Substance: CLONAZEPAM
     Route: 065

REACTIONS (5)
  - Weight decreased [Unknown]
  - Meniere^s disease [Unknown]
  - Coeliac disease [Unknown]
  - Vertigo [Unknown]
  - Vomiting [Unknown]
